FAERS Safety Report 7996062-5 (Version None)
Quarter: 2011Q4

REPORT INFORMATION
  Report Type: 
  Country: None (occurrence: None)
  Receive Date: 20111220
  Receipt Date: 20111211
  Transmission Date: 20120403
  Serious: Yes (Other)
  Sender: FDA-Public Use
  Company Number: PHHY2011IT95310

PATIENT
  Age: 41 Year
  Sex: Female

DRUGS (7)
  1. ZOMETA [Suspect]
     Dosage: UNK UKN, UNK
     Dates: start: 20110818
  2. ZOMETA [Suspect]
     Dosage: UNK UKN, UNK
     Dates: start: 20110915
  3. GONADORELIN INJ [Concomitant]
     Dosage: UNK UKN, UNK
     Dates: start: 20090902
  4. FEMARA [Concomitant]
     Dosage: UNK UKN, UNK
     Dates: start: 20090902
  5. ZOMETA [Suspect]
     Indication: METASTASES TO BONE
     Dosage: UNK UKN, UNK
     Dates: start: 20110701
  6. NOLVADEX [Concomitant]
     Dosage: UNK UKN, UNK
     Dates: start: 20100101
  7. CHEMOTHERAPEUTICS [Concomitant]
     Dosage: UNK UKN, UNK

REACTIONS (2)
  - OSTEONECROSIS OF JAW [None]
  - TOOTH ABSCESS [None]
